FAERS Safety Report 8341159-3 (Version None)
Quarter: 2012Q1

REPORT INFORMATION
  Report Type: 
  Country: None (occurrence: None)
  Receive Date: 20120330
  Receipt Date: 20111003
  Transmission Date: 20120608
  Serious: Yes (Other)
  Sender: FDA-Public Use
  Company Number: PHHY2011US68903

PATIENT
  Age: 72 Year
  Sex: Female

DRUGS (13)
  1. COZAAR [Concomitant]
  2. VITAMIN D [Concomitant]
  3. MIRALAX [Suspect]
  4. RANITIN (RANITIDINE HYDROCHLORIDE) [Concomitant]
  5. ASPIRIN [Concomitant]
  6. CITRACAL (CALCIUM CITRATE) [Concomitant]
  7. VALACYCLOVIR [Concomitant]
  8. LISINOPRIL [Concomitant]
  9. EXELON [Suspect]
     Dosage: 3 MG, BID, ORAL
     Route: 048
  10. CRESTOR [Concomitant]
  11. AMLODIPINE [Concomitant]
  12. PAXIL [Concomitant]
  13. OMEPRAZOLE [Concomitant]

REACTIONS (13)
  - DYSPNOEA [None]
  - PARAESTHESIA [None]
  - ABDOMINAL PAIN UPPER [None]
  - ANXIETY [None]
  - VOMITING [None]
  - BLOOD PRESSURE INCREASED [None]
  - PANIC ATTACK [None]
  - MEMORY IMPAIRMENT [None]
  - AGITATION [None]
  - PALPITATIONS [None]
  - CONSTIPATION [None]
  - MALAISE [None]
  - TREMOR [None]
